FAERS Safety Report 19486481 (Version 1)
Quarter: 2021Q3

REPORT INFORMATION
  Report Type: Spontaneous
  Country: TR (occurrence: TR)
  Receive Date: 20210702
  Receipt Date: 20210702
  Transmission Date: 20211014
  Serious: Yes (Death, Life-Threatening, Hospitalization, Other)
  Sender: FDA-Public Use
  Company Number: TR-ACCORD-229809

PATIENT
  Age: 16 Year
  Sex: Male

DRUGS (4)
  1. TRANDOLAPRIL AND VERAPAMIL HYDROCHLORIDE [Suspect]
     Active Substance: TRANDOLAPRIL\VERAPAMIL HYDROCHLORIDE
  2. RAMIPRIL. [Suspect]
     Active Substance: RAMIPRIL
  3. ACETYLSALICYLIC ACID [Suspect]
     Active Substance: ASPIRIN
  4. METOPROLOL. [Suspect]
     Active Substance: METOPROLOL

REACTIONS (8)
  - Hypotension [Fatal]
  - Brain death [Fatal]
  - Cardio-respiratory arrest [Fatal]
  - Loss of consciousness [Fatal]
  - Toxicity to various agents [Fatal]
  - Hypoperfusion [Fatal]
  - Cardiac arrest [Fatal]
  - Intentional overdose [Fatal]
